FAERS Safety Report 8916352 (Version 4)
Quarter: 2013Q4

REPORT INFORMATION
  Report Type: Spontaneous
  Country: US (occurrence: US)
  Receive Date: 20121120
  Receipt Date: 20131031
  Transmission Date: 20140711
  Serious: Yes (Hospitalization, Other)
  Sender: FDA-Public Use
  Company Number: US-009507513-1211USA008010

PATIENT
  Sex: Female
  Weight: 68.27 kg

DRUGS (1)
  1. NUVARING [Suspect]
     Indication: CONTRACEPTION
     Dosage: UNK
     Dates: start: 20080327, end: 20101129

REACTIONS (8)
  - Thrombolysis [Unknown]
  - Deep vein thrombosis [Recovered/Resolved]
  - Pulmonary embolism [Unknown]
  - Uterine leiomyoma [Unknown]
  - Ovarian cyst ruptured [Unknown]
  - Urticaria [Unknown]
  - Asthma [Unknown]
  - Depression [Unknown]
